FAERS Safety Report 15838414 (Version 1)
Quarter: 2019Q1

REPORT INFORMATION
  Report Type: Not Available
  Country: US (occurrence: US)
  Receive Date: 20190117
  Receipt Date: 20190117
  Transmission Date: 20190417
  Serious: Yes (Other)
  Sender: FDA-Public Use
  Company Number: US-UNICHEM PHARMACEUTICALS (USA) INC-UCM201901-000021

PATIENT
  Age: 7 Year
  Sex: Male

DRUGS (8)
  1. TRIHEXYPHENIDYL [Suspect]
     Active Substance: TRIHEXYPHENIDYL
     Indication: EPILEPSY
  2. TOPIRAMATE. [Suspect]
     Active Substance: TOPIRAMATE
     Indication: EPILEPSY
  3. CLOBAZAM. [Suspect]
     Active Substance: CLOBAZAM
     Indication: EPILEPSY
  4. LEVETIRACETAM. [Suspect]
     Active Substance: LEVETIRACETAM
     Indication: EPILEPSY
  5. RUFINAMIDE [Suspect]
     Active Substance: RUFINAMIDE
     Indication: EPILEPSY
  6. DIVALPROEX SODIUM. [Suspect]
     Active Substance: DIVALPROEX SODIUM
     Indication: EPILEPSY
  7. PHENOBARBITAL. [Suspect]
     Active Substance: PHENOBARBITAL
     Indication: EPILEPSY
  8. LORAZEPAM. [Suspect]
     Active Substance: LORAZEPAM
     Indication: EPILEPSY

REACTIONS (2)
  - Fanconi syndrome [Recovering/Resolving]
  - Biopsy kidney abnormal [Recovering/Resolving]
